FAERS Safety Report 8349363-5 (Version None)
Quarter: 2012Q2

REPORT INFORMATION
  Report Type: 
  Country: None (occurrence: None)
  Receive Date: 20120510
  Receipt Date: 20120509
  Transmission Date: 20120825
  Serious: Yes (Hospitalization, Other)
  Sender: FDA-Public Use
  Company Number: PHEH2005US10974

PATIENT
  Sex: Male
  Weight: 59 kg

DRUGS (55)
  1. PROTONIX [Concomitant]
  2. FOLIC ACID [Concomitant]
  3. REGLAN [Concomitant]
     Dosage: 5 MG, UNK
  4. LIDOCAINE HYDROCHLORIDE [Concomitant]
  5. LORAZEPAM [Concomitant]
  6. ACETAMINOPHEN [Concomitant]
     Dosage: 650 MG, UNK
  7. ZOMETA [Suspect]
     Indication: MULTIPLE MYELOMA
     Dosage: 4 MG, QMO
     Route: 042
     Dates: end: 20050519
  8. SEPTOCAINE [Suspect]
  9. VINCRISTINE [Concomitant]
     Indication: MULTIPLE MYELOMA
     Dosage: UNK UKN, UNK
     Dates: start: 20030101, end: 20040101
  10. MEGACE [Concomitant]
  11. LOPRESSOR [Concomitant]
  12. ASPIRIN [Concomitant]
  13. INDOMETHACIN [Concomitant]
     Dosage: 50 MG, TID
  14. DILANTIN [Concomitant]
     Dosage: 3000 MG, UNK
  15. FERROUS SULFATE TAB [Concomitant]
     Dosage: 325 MG, BID
  16. PROMETHAZINE HCL [Concomitant]
     Dosage: 25 MG, UNK
  17. ADRIAMYCIN PFS [Concomitant]
     Indication: MULTIPLE MYELOMA
     Dosage: UNK UKN, UNK
     Dates: start: 20030101, end: 20040101
  18. MORPHINE [Concomitant]
  19. REMERON [Concomitant]
  20. COMPAZINE [Concomitant]
     Dosage: 10 MG, PRN
  21. PREDNISONE TAB [Concomitant]
  22. TOPROL-XL [Concomitant]
  23. MELPHALAN HYDROCHLORIDE [Concomitant]
  24. DAILY-VITE [Concomitant]
     Dosage: 1 DF, QD
     Route: 048
  25. DEXAMETHASONE [Concomitant]
     Dosage: UNK UKN, UNK
     Dates: start: 20030101
  26. METHADONE HCL [Concomitant]
  27. COUMADIN [Concomitant]
  28. PLAVIX [Concomitant]
  29. TRIMOX [Concomitant]
     Dosage: 2 DF, UNK
  30. OMEPRAZOLE [Concomitant]
     Dosage: 20 MG, QD
     Route: 048
  31. AREDIA [Suspect]
     Indication: MULTIPLE MYELOMA
     Dosage: 60 MG, QMO
     Route: 042
  32. ATIVAN [Concomitant]
  33. THALIDOMIDE [Concomitant]
     Indication: MULTIPLE MYELOMA
     Dosage: 100 MG,
     Route: 048
     Dates: start: 20040217, end: 20040330
  34. EPOGEN [Concomitant]
  35. VASOTEC [Concomitant]
  36. TYLENOL (CAPLET) [Concomitant]
  37. COLACE [Concomitant]
  38. PAXIL [Concomitant]
  39. PHENYTOIN [Concomitant]
     Dosage: 300 MG, UNK
  40. LOPERAMIDE [Concomitant]
  41. TAMOXIFEN CITRATE [Concomitant]
     Dosage: 10 MG, UNK
  42. ZYVOX [Concomitant]
     Dosage: 600 MG, BID
  43. VELCADE [Concomitant]
     Indication: MULTIPLE MYELOMA
     Dosage: 1.3 MG/M2, UNK
     Route: 042
     Dates: start: 20040330, end: 20040610
  44. CITANEST [Concomitant]
  45. HEPARIN [Concomitant]
     Dosage: 50000 U, BID
  46. XANAX [Concomitant]
     Dosage: 1 MG, TID
  47. VALIUM [Concomitant]
  48. DILAUDID [Concomitant]
  49. MS CONTIN [Concomitant]
  50. AMITRIPTYLINE HCL [Concomitant]
  51. ZOFRAN [Concomitant]
  52. OXYCONTIN [Concomitant]
  53. NITROGLYCERIN [Concomitant]
  54. SENOKOT [Concomitant]
     Dosage: UNK UKN, PRN
  55. BISACODYL [Concomitant]
     Dosage: 5 MG, UNK

REACTIONS (100)
  - CONJUNCTIVAL HAEMORRHAGE [None]
  - SEPSIS [None]
  - ENDOCARDITIS [None]
  - MITRAL VALVE DISEASE [None]
  - WOUND DECOMPOSITION [None]
  - ANAEMIA [None]
  - MULTIPLE MYELOMA [None]
  - ARTERIOVENOUS FISTULA OCCLUSION [None]
  - ARTERIOVENOUS FISTULA THROMBOSIS [None]
  - SPLENOMEGALY [None]
  - ENCEPHALOPATHY [None]
  - DYSPNOEA PAROXYSMAL NOCTURNAL [None]
  - CATARACT [None]
  - PNEUMONIA [None]
  - EAR INFECTION [None]
  - STAPHYLOCOCCAL BACTERAEMIA [None]
  - PYREXIA [None]
  - OSTEOPOROSIS [None]
  - NEPHROPATHY [None]
  - MUCOSAL INFLAMMATION [None]
  - BONE LESION [None]
  - IMMUNOSUPPRESSION [None]
  - HYPERTENSION [None]
  - CERVICAL SPINAL STENOSIS [None]
  - GASTROOESOPHAGEAL REFLUX DISEASE [None]
  - PROSTATOMEGALY [None]
  - OEDEMA PERIPHERAL [None]
  - JOINT SWELLING [None]
  - BLOOD PRESSURE INCREASED [None]
  - HIATUS HERNIA [None]
  - CHILLS [None]
  - TOOTHACHE [None]
  - BONE DISORDER [None]
  - RENAL FAILURE CHRONIC [None]
  - IMPAIRED GASTRIC EMPTYING [None]
  - VERTEBRAL FORAMINAL STENOSIS [None]
  - CARDIAC FAILURE CONGESTIVE [None]
  - OEDEMA [None]
  - SUPERIOR VENA CAVA SYNDROME [None]
  - SPINAL OSTEOARTHRITIS [None]
  - SYNOVIAL RUPTURE [None]
  - COMPRESSION FRACTURE [None]
  - CONVULSION [None]
  - LUNG INFILTRATION [None]
  - BRONCHITIS [None]
  - VIRAL INFECTION [None]
  - TACHYCARDIA [None]
  - HYPOXIA [None]
  - SEDATION [None]
  - BACK PAIN [None]
  - PROGRESSIVE SUPRANUCLEAR PALSY [None]
  - AEROMONA INFECTION [None]
  - OSTEONECROSIS OF JAW [None]
  - TOOTH DISCOLOURATION [None]
  - THROMBOCYTOPENIA [None]
  - OSTEOPENIA [None]
  - GOUTY ARTHRITIS [None]
  - VASCULAR PSEUDOANEURYSM [None]
  - JUGULAR VEIN THROMBOSIS [None]
  - CHOLELITHIASIS [None]
  - HYPONATRAEMIA [None]
  - NEUROPATHY PERIPHERAL [None]
  - HYPOPHOSPHATAEMIA [None]
  - URINARY TRACT INFECTION [None]
  - DEVICE RELATED SEPSIS [None]
  - CLOSTRIDIUM DIFFICILE COLITIS [None]
  - ATELECTASIS [None]
  - OSTEOLYSIS [None]
  - PLEURAL EFFUSION [None]
  - PERITONITIS [None]
  - HYPERTHYROIDISM [None]
  - GASTROINTESTINAL HAEMORRHAGE [None]
  - GYNAECOMASTIA [None]
  - OSTEOARTHRITIS [None]
  - RESPIRATORY DISTRESS [None]
  - SINUS TACHYCARDIA [None]
  - ASTHENIA [None]
  - RASH MACULAR [None]
  - DENTAL PLAQUE [None]
  - HYPERKALAEMIA [None]
  - PANCYTOPENIA [None]
  - KYPHOSIS [None]
  - DEEP VEIN THROMBOSIS [None]
  - HEPATITIS C [None]
  - ILEUS [None]
  - ERECTILE DYSFUNCTION [None]
  - DEVICE RELATED INFECTION [None]
  - CELLULITIS [None]
  - FEBRILE NEUTROPENIA [None]
  - AZOTAEMIA [None]
  - SEXUAL DYSFUNCTION [None]
  - INTERVERTEBRAL DISC DEGENERATION [None]
  - FLUID OVERLOAD [None]
  - MENTAL STATUS CHANGES [None]
  - CHOLECYSTITIS [None]
  - PULMONARY CONGESTION [None]
  - AORTIC VALVE INCOMPETENCE [None]
  - CHEST PAIN [None]
  - DIZZINESS [None]
  - DYSPNOEA [None]
